FAERS Safety Report 8903849 (Version 5)
Quarter: 2014Q2

REPORT INFORMATION
  Report Type: Spontaneous
  Country: CA (occurrence: US)
  Receive Date: 20121113
  Receipt Date: 20140530
  Transmission Date: 20141212
  Serious: Yes (Disabling)
  Sender: FDA-Public Use
  Company Number: US-009507513-1211USA004429

PATIENT
  Sex: Male

DRUGS (2)
  1. PROPECIA [Suspect]
     Indication: ANDROGENETIC ALOPECIA
     Dosage: 1 MG, UNK
     Route: 048
     Dates: start: 2006
  2. PROPECIA [Suspect]
     Dosage: 1.025 UNK, UNK
     Route: 048

REACTIONS (24)
  - Anxiety [Not Recovered/Not Resolved]
  - Emotional distress [Unknown]
  - Erectile dysfunction [Unknown]
  - Sexual dysfunction [Not Recovered/Not Resolved]
  - Erectile dysfunction [Not Recovered/Not Resolved]
  - Depression [Not Recovered/Not Resolved]
  - Confusional state [Not Recovered/Not Resolved]
  - Libido decreased [Not Recovered/Not Resolved]
  - Semen volume decreased [Not Recovered/Not Resolved]
  - Orgasm abnormal [Not Recovered/Not Resolved]
  - Testicular pain [Not Recovered/Not Resolved]
  - Feeling abnormal [Not Recovered/Not Resolved]
  - Overdose [Unknown]
  - Insomnia [Unknown]
  - Post-traumatic stress disorder [Unknown]
  - Arthralgia [Unknown]
  - Arthroscopy [Unknown]
  - Lipoma [Unknown]
  - Laceration [Recovered/Resolved]
  - Raynaud^s phenomenon [Unknown]
  - Nasopharyngitis [Unknown]
  - Headache [Unknown]
  - Back pain [Unknown]
  - Blood testosterone decreased [Not Recovered/Not Resolved]
